FAERS Safety Report 11354044 (Version 1)
Quarter: 2015Q3

REPORT INFORMATION
  Report Type: Spontaneous
  Country: US (occurrence: US)
  Receive Date: 20150807
  Receipt Date: 20150807
  Transmission Date: 20151125
  Serious: No
  Sender: FDA-Public Use
  Company Number: US-JNJFOC-20150613927

PATIENT
  Age: 65 Year
  Sex: Female
  Weight: 63.5 kg

DRUGS (3)
  1. WOMENS ROGAINE UNSCENTED [Suspect]
     Active Substance: MINOXIDIL
     Route: 061
  2. WOMENS ROGAINE UNSCENTED [Suspect]
     Active Substance: MINOXIDIL
     Indication: HAIR GROWTH ABNORMAL
     Dosage: HALF CAP
     Route: 061
  3. VITAMIN-SUPPLEMENTS [Concomitant]
     Indication: GENERAL PHYSICAL CONDITION
     Route: 065

REACTIONS (2)
  - Underdose [Unknown]
  - Hair texture abnormal [Unknown]
